FAERS Safety Report 11666114 (Version 1)
Quarter: 2015Q4

REPORT INFORMATION
  Report Type: Spontaneous
  Country: US (occurrence: US)
  Receive Date: 20151027
  Receipt Date: 20151027
  Transmission Date: 20160304
  Serious: No
  Sender: FDA-Public Use
  Company Number: US-ELI_LILLY_AND_COMPANY-US201001004260

PATIENT
  Sex: Female

DRUGS (7)
  1. HEPARIN [Concomitant]
     Active Substance: HEPARIN SODIUM
  2. FORTEO [Suspect]
     Active Substance: TERIPARATIDE
     Indication: OSTEOPOROSIS
     Dosage: 20 UG, DAILY (1/D)
     Dates: start: 200908
  3. IMITREX [Concomitant]
     Active Substance: SUMATRIPTAN\SUMATRIPTAN SUCCINATE
  4. XANAX [Concomitant]
     Active Substance: ALPRAZOLAM
  5. PHENERGAN [Concomitant]
     Active Substance: PROMETHAZINE HYDROCHLORIDE
  6. LASIX [Concomitant]
     Active Substance: FUROSEMIDE
  7. OXYCODONE [Concomitant]
     Active Substance: OXYCODONE

REACTIONS (1)
  - Gallbladder disorder [Recovering/Resolving]

NARRATIVE: CASE EVENT DATE: 200908
